FAERS Safety Report 5962696-2 (Version None)
Quarter: 2008Q4

REPORT INFORMATION
  Report Type: 
  Country: None (occurrence: None)
  Receive Date: 20081124
  Receipt Date: 20081112
  Transmission Date: 20090506
  Serious: Yes (Hospitalization, Other)
  Sender: FDA-Public Use
  Company Number: FR-BAYER-200826854GPV

PATIENT
  Age: 23 Year
  Sex: Female

DRUGS (2)
  1. ULTRAVIST 300 [Suspect]
     Indication: COMPUTERISED TOMOGRAM ABDOMEN
     Route: 042
     Dates: start: 20080818, end: 20080818
  2. BISEPTINE (CHLORHEXIDINE, BENZALKONIUM CHLORIDE, BENZYLIC ALCOHOL) [Concomitant]
     Route: 061

REACTIONS (4)
  - RASH [None]
  - SNEEZING [None]
  - SWELLING FACE [None]
  - VOMITING [None]
